FAERS Safety Report 5298040-6 (Version None)
Quarter: 2007Q2

REPORT INFORMATION
  Report Type: 
  Country: None (occurrence: None)
  Receive Date: 20070416
  Receipt Date: 20070404
  Transmission Date: 20071010
  Serious: Yes (Hospitalization)
  Sender: FDA-Public Use
  Company Number: HQWYE878215MAR07

PATIENT
  Sex: Male

DRUGS (7)
  1. CORDARONE [Suspect]
     Indication: ARRHYTHMIA
     Route: 048
     Dates: start: 20060101, end: 20070127
  2. FUROSEMIDE [Concomitant]
     Route: 065
  3. FERROUS GLUCONATE [Concomitant]
     Route: 048
  4. GLIBENCLAMIDE [Concomitant]
     Dosage: 5 MG
     Route: 048
  5. METFORMIN HCL [Concomitant]
     Dosage: 500 MG
     Route: 048
  6. LANOXIN [Suspect]
     Indication: ARRHYTHMIA
     Route: 048
     Dates: start: 20060101, end: 20070127
  7. ALDACTONE [Concomitant]
     Dosage: UNKNOWN
     Route: 065

REACTIONS (3)
  - BRADYCARDIA [None]
  - COUGH [None]
  - HYPOTHYROIDISM [None]
